FAERS Safety Report 10373747 (Version 1)
Quarter: 2014Q1

REPORT INFORMATION
  Report Type: Spontaneous
  Country: US (occurrence: None)
  Receive Date: 20140306
  Receipt Date: 20140306
  Transmission Date: 20141002
  Serious: Yes (Hospitalization, Other)
  Sender: FDA-Public Use
  Company Number: 163-21880-13051957

PATIENT
  Age: 82 Year
  Sex: Male

DRUGS (8)
  1. REVLIMID (LENALIDOMIDE) (25 MILLIGRAM, CAPSULES) [Suspect]
     Indication: PLASMA CELL MYELOMA
     Dosage: 21 IN 28 D
     Route: 048
     Dates: start: 20130402, end: 201306
  2. COLESTID (COLESTIPDOL HYDROCHLORIDE) [Concomitant]
  3. ZOLOFT (SERTRALINE HYDROCHLORIDE) [Concomitant]
  4. NEURONTIN (GABAPENTIN) [Concomitant]
  5. PRILOSEC DR (OMEPRAZOLE) [Concomitant]
  6. ASPIRIN (ACETYLSALICYLIC ACID) [Concomitant]
  7. ZENPEP DR (PANCRELIPASE) [Concomitant]
  8. VITAMIN D3 (COLECALCIFEROL) [Concomitant]

REACTIONS (2)
  - Diarrhoea [None]
  - Dry skin [None]
